FAERS Safety Report 18281165 (Version 1)
Quarter: 2020Q3

REPORT INFORMATION
  Report Type: Spontaneous
  Country: DE (occurrence: DE)
  Receive Date: 20200918
  Receipt Date: 20200918
  Transmission Date: 20201103
  Serious: Yes (Hospitalization, Other)
  Sender: FDA-Public Use
  Company Number: DE-ACCORD-201505

PATIENT
  Age: 96 Year
  Sex: Female

DRUGS (12)
  1. PANTOPRAZOLE [Concomitant]
     Active Substance: PANTOPRAZOLE
     Dosage: 20 MG, IF NECESSARY, TABLETS
     Route: 048
  2. TORASEMIDE [Concomitant]
     Active Substance: TORSEMIDE
     Dosage: 10 MG, 0.5?0?0?0, TABLET
     Route: 048
  3. PRAMIPEXOLE/PRAMIPEXOLE DIHYDROCHLORIDE [Suspect]
     Active Substance: PRAMIPEXOLE DIHYDROCHLORIDE
     Indication: PRODUCT USED FOR UNKNOWN INDICATION
     Dosage: 0.17 MG, 0?0?0?0.5, TABLETS
     Route: 048
  4. METAMIZOLE SODIUM [Concomitant]
     Active Substance: METAMIZOLE SODIUM
     Dosage: 30 GTT, 4 X, DROPS
     Route: 048
  5. COLECALCIFEROL [Concomitant]
     Active Substance: CHOLECALCIFEROL
     Dosage: 1000 IE, 1?0?0?0, TABLETS
     Route: 048
  6. APIXABAN [Suspect]
     Active Substance: APIXABAN
     Indication: PRODUCT USED FOR UNKNOWN INDICATION
     Dosage: 2.5 MG, 1?0?1?0, TABLETS
     Route: 048
  7. BISOPROLOL [Concomitant]
     Active Substance: BISOPROLOL
     Dosage: 5 MG, 1?0?1?0, TABLET
     Route: 048
  8. CALCIUM HEXAL [Concomitant]
     Active Substance: CALCIUM CARBONATE
     Dosage: 500 MG,  0?1?0?0, EFFERVESCENT TABLETS
     Route: 048
  9. IBEROGAST [Concomitant]
     Active Substance: HERBALS
     Dosage: NK MG, IF NECESSARY, SYRUP
     Route: 048
  10. CANDESARTAN. [Concomitant]
     Active Substance: CANDESARTAN
     Dosage: 16 MG, 1?0?1?0, TABLET
     Route: 048
  11. MOLSIDOMINE [Concomitant]
     Active Substance: MOLSIDOMINE
     Dosage: 8 MG, 0?0?0?1, RETARD?TABLETS
     Route: 048
  12. DIGITOXIN [Concomitant]
     Active Substance: DIGITOXIN
     Dosage: 0.07 MG, 1?0?0?0, TABLETS
     Route: 048

REACTIONS (6)
  - Internal haemorrhage [Unknown]
  - Subdural haematoma [Unknown]
  - Headache [Unknown]
  - Fall [Unknown]
  - Wound [Unknown]
  - Skull fracture [Unknown]
